FAERS Safety Report 5654070-3 (Version None)
Quarter: 2008Q1

REPORT INFORMATION
  Report Type: 
  Country: None (occurrence: None)
  Receive Date: 20080306
  Receipt Date: 20080226
  Transmission Date: 20080703
  Serious: Yes (Other)
  Sender: FDA-Public Use
  Company Number: DE-PFIZER INC-2008018306

PATIENT
  Age: 19 Year
  Sex: Male

DRUGS (2)
  1. GENOTROPIN [Suspect]
     Indication: HYPOPITUITARISM
     Dates: start: 19960324, end: 20060730
  2. GENOTROPIN [Suspect]
     Dates: start: 20070511, end: 20080115

REACTIONS (4)
  - ANGER [None]
  - DEPRESSED MOOD [None]
  - MENTAL DISORDER [None]
  - MOOD ALTERED [None]
